FAERS Safety Report 7018842-5 (Version None)
Quarter: 2010Q3

REPORT INFORMATION
  Report Type: 
  Country: None (occurrence: None)
  Receive Date: 20100928
  Receipt Date: 20100914
  Transmission Date: 20110219
  Serious: Yes (Other)
  Sender: FDA-Public Use
  Company Number: IT-MYLANLABS-2010S1016836

PATIENT
  Age: 43 Year
  Sex: Female

DRUGS (3)
  1. CLARITHROMYCIN [Suspect]
     Indication: BACTERIAL INFECTION
     Route: 048
     Dates: start: 20100810, end: 20100818
  2. TACHIPIRINA [Concomitant]
     Indication: PRODUCT USED FOR UNKNOWN INDICATION
  3. CLENIL COMPOSITUM /01805401/ [Concomitant]
     Indication: PRODUCT USED FOR UNKNOWN INDICATION

REACTIONS (4)
  - RESPIRATORY DISORDER [None]
  - SYNCOPE [None]
  - VERTIGO [None]
  - VOMITING [None]
